FAERS Safety Report 9914675 (Version 3)
Quarter: 2014Q2

REPORT INFORMATION
  Report Type: Report from Study
  Country: CN (occurrence: CN)
  Receive Date: 20140220
  Receipt Date: 20140408
  Transmission Date: 20141212
  Serious: Yes (Life-Threatening, Hospitalization)
  Sender: FDA-Public Use
  Company Number: CN-NAPPMUNDI-GBR-2013-0016764

PATIENT
  Age: 40 Year
  Sex: Male
  Weight: 71 kg

DRUGS (2)
  1. OXY CR TAB [Suspect]
     Indication: CANCER PAIN
     Dosage: 40 MG, DAILY
     Route: 048
     Dates: start: 20131209, end: 20131223
  2. OXYCODONE HCL PR TABLETS 5 MG [Concomitant]
     Dosage: 5 MG, DAILY
     Route: 048
     Dates: start: 20131130

REACTIONS (2)
  - Intentional overdose [Recovered/Resolved]
  - Suicide attempt [Recovered/Resolved]
